FAERS Safety Report 8855780 (Version 1)
Quarter: 2012Q4

REPORT INFORMATION
  Report Type: 
  Country: GB (occurrence: GB)
  Receive Date: 20121023
  Receipt Date: 20121023
  Transmission Date: 20130627
  Serious: Yes (Other)
  Sender: FDA-Public Use
  Company Number: PHFR2006GB03842

PATIENT
  Sex: Male

DRUGS (1)
  1. CLOZARIL [Suspect]
     Route: 048
     Dates: start: 20010701

REACTIONS (4)
  - Upper limb fracture [Unknown]
  - Deep vein thrombosis [Unknown]
  - Convulsion [Unknown]
  - Overdose [Unknown]
